FAERS Safety Report 11596465 (Version 1)
Quarter: 2015Q4

REPORT INFORMATION
  Report Type: Spontaneous
  Country: US (occurrence: US)
  Receive Date: 20151006
  Receipt Date: 20151006
  Transmission Date: 20160304
  Serious: No
  Sender: FDA-Public Use
  Company Number: US-WATSON-2014-22986

PATIENT
  Age: 72 Year
  Sex: Female
  Weight: 54 kg

DRUGS (2)
  1. GABAPENTIN (AELLC) [Suspect]
     Active Substance: GABAPENTIN
     Indication: NEURALGIA
     Dosage: 600 MG, 5 X A DAY
     Route: 065
     Dates: start: 2006
  2. LEVOTHYROXINE. [Concomitant]
     Active Substance: LEVOTHYROXINE
     Indication: PRODUCT USED FOR UNKNOWN INDICATION
     Dosage: 25 MCG, DAILY
     Route: 065

REACTIONS (1)
  - Dyspepsia [Unknown]

NARRATIVE: CASE EVENT DATE: 2012
